FAERS Safety Report 13524759 (Version 1)
Quarter: 2017Q2

REPORT INFORMATION
  Report Type: Spontaneous
  Country: US (occurrence: US)
  Receive Date: 20170508
  Receipt Date: 20170508
  Transmission Date: 20170830
  Serious: No
  Sender: FDA-Public Use
  Company Number: US-ROCHE-1078845

PATIENT
  Sex: Female

DRUGS (1)
  1. AVASTIN [Suspect]
     Active Substance: BEVACIZUMAB
     Indication: OVARIAN CANCER
     Route: 065
     Dates: end: 20120228

REACTIONS (4)
  - Rectocele [Not Recovered/Not Resolved]
  - Hypertension [Recovered/Resolved]
  - Bladder prolapse [Not Recovered/Not Resolved]
  - Vaginal prolapse [Not Recovered/Not Resolved]
